FAERS Safety Report 20145597 (Version 2)
Quarter: 2022Q1

REPORT INFORMATION
  Report Type: Spontaneous
  Country: FR (occurrence: FR)
  Receive Date: 20211203
  Receipt Date: 20220117
  Transmission Date: 20220423
  Serious: Yes (Hospitalization)
  Sender: FDA-Public Use
  Company Number: None

PATIENT
  Age: 3 Year
  Sex: Male
  Weight: 13.3 kg

DRUGS (10)
  1. METHOTREXATE (METHOTREXATE SODIUM) [Suspect]
     Active Substance: METHOTREXATE SODIUM
     Indication: Acute lymphocytic leukaemia
     Dosage: (5 G / 50 ML),UNIT DOSE:290MILLIGRAM
     Route: 041
     Dates: start: 20211018, end: 20211018
  2. METHOTREXATE (METHOTREXATE SODIUM) [Suspect]
     Active Substance: METHOTREXATE SODIUM
     Dosage: (5 G / 50 ML),UNIT DOSE:12MILLIGRAM
     Route: 037
     Dates: start: 20211019, end: 20211019
  3. LEUCOVORIN CALCIUM [Concomitant]
     Active Substance: LEUCOVORIN CALCIUM
     Indication: Chemotherapy side effect prophylaxis
     Dosage: ZENTIVA,5 MG / 2 ML,(IM, IV) IN AMPOULE,UNIT DOSE:9MILLIGRAM
     Route: 040
     Dates: start: 20211020, end: 20211022
  4. NALBUPHINE HYDROCHLORIDE [Concomitant]
     Active Substance: NALBUPHINE HYDROCHLORIDE
     Indication: Pain
     Dosage: 3MILLIGRAM,FORM STRENGTH:20 MG / 2 ML
     Route: 040
     Dates: start: 20211019, end: 20211019
  5. ALIZAPRIDE HYDROCHLORIDE [Concomitant]
     Active Substance: ALIZAPRIDE HYDROCHLORIDE
     Indication: Prophylaxis of nausea and vomiting
     Dosage: 30MILLIGRAM
     Route: 040
     Dates: start: 20211018, end: 20211019
  6. HYDROXYZINE [Concomitant]
     Active Substance: HYDROXYZINE HYDROCHLORIDE
     Indication: Anxiety
     Dosage: RENAUDIN ,FORM STRENGTH:100 MG / 2 ML,UNIT DOSE:13MILLIGRAM
     Route: 040
     Dates: start: 20211019, end: 20211019
  7. PENTACARINAT [Concomitant]
     Active Substance: PENTAMIDINE ISETHIONATE
     Indication: Parasitic infection prophylaxis
     Dosage: FORMOF ADMIN:POWDER FOR AEROSOL AND FOR PARENTERAL USE,UNIT DOSE:300MILLIGRAM
     Route: 055
  8. FUROSEMIDE [Concomitant]
     Active Substance: FUROSEMIDE
     Indication: Urinary retention
     Dosage: FORM STRENGTH:20 MG / 2 ML,UNIT DOSE:5MILLIGRAM,(IM-IV),UNIT DOSE:5MILLIGRAM
     Route: 040
     Dates: start: 20211018, end: 20211022
  9. ONDANSETRON [Concomitant]
     Active Substance: ONDANSETRON
     Indication: Prophylaxis of nausea and vomiting
     Dosage: UNIT DOSE:2MILLIGRAM,(I.V.)
     Route: 040
     Dates: start: 20211018, end: 20211019
  10. MERCAPTOPURINE [Concomitant]
     Active Substance: MERCAPTOPURINE
     Indication: Acute lymphocytic leukaemia
     Dosage: 0.7ML
     Route: 048
     Dates: start: 20211011

REACTIONS (1)
  - Drug clearance decreased [Recovered/Resolved]

NARRATIVE: CASE EVENT DATE: 20211020
